FAERS Safety Report 25945921 (Version 1)
Quarter: 2025Q4

REPORT INFORMATION
  Report Type: Spontaneous
  Country: US (occurrence: US)
  Receive Date: 20251021
  Receipt Date: 20251021
  Transmission Date: 20260118
  Serious: Yes (Other)
  Sender: ARDELYX
  Company Number: US-ARDELYX-2025ARDX006912

PATIENT
  Sex: Female

DRUGS (1)
  1. IBSRELA [Suspect]
     Active Substance: TENAPANOR HYDROCHLORIDE
     Indication: Constipation
     Dosage: 50 MG, BID (DIRECTIONS ON RX (1 TAB TWICE DAILY))
     Route: 048
     Dates: start: 20250822

REACTIONS (8)
  - Impaired gastric emptying [Unknown]
  - Colonoscopy [Unknown]
  - Nausea [Unknown]
  - Abdominal pain [Unknown]
  - Product use in unapproved indication [Unknown]
  - Insurance issue [Unknown]
  - Product use issue [Unknown]
  - Therapy interrupted [Unknown]

NARRATIVE: CASE EVENT DATE: 20250101
